FAERS Safety Report 10721573 (Version 1)
Quarter: 2015Q1

REPORT INFORMATION
  Report Type: Spontaneous
  Country: US (occurrence: US)
  Receive Date: 20150119
  Receipt Date: 20150119
  Transmission Date: 20150721
  Serious: Yes (Death)
  Sender: FDA-Public Use
  Company Number: US-BAYER-2015-005148

PATIENT
  Age: 68 Year
  Sex: Female

DRUGS (11)
  1. ROMILAR [Suspect]
     Active Substance: DEXTROMETHORPHAN HYDROBROMIDE
     Route: 048
  2. LYSOZYME [Suspect]
     Active Substance: LYSOZYME
     Route: 048
  3. CODEINE [Suspect]
     Active Substance: CODEINE
     Route: 048
  4. AMPICILLIN [Suspect]
     Active Substance: AMPICILLIN
     Route: 048
  5. DIPHENHYDRAMINE HYDROCHLORIDE. [Suspect]
     Active Substance: DIPHENHYDRAMINE HYDROCHLORIDE
     Route: 048
  6. ACETYLSALICYLIC ACID({=100 MG) [Suspect]
     Active Substance: ASPIRIN
     Route: 048
  7. EPRAZINONE [Suspect]
     Active Substance: EPRAZINONE
     Route: 048
  8. N-ACETYLCYSTEINE [Suspect]
     Active Substance: ACETYLCYSTEINE
     Route: 048
  9. CEPHALEXIN. [Suspect]
     Active Substance: CEPHALEXIN
     Route: 048
  10. PIRACETAM [Suspect]
     Active Substance: PIRACETAM
     Route: 048
  11. CEFIXIME. [Suspect]
     Active Substance: CEFIXIME
     Route: 048

REACTIONS (3)
  - Intentional overdose [Fatal]
  - Toxicity to various agents [Fatal]
  - Completed suicide [None]
